FAERS Safety Report 12764377 (Version 2)
Quarter: 2016Q3

REPORT INFORMATION
  Report Type: Spontaneous
  Country: US (occurrence: US)
  Receive Date: 20160920
  Receipt Date: 20160928
  Transmission Date: 20161109
  Serious: Yes (Hospitalization, Other)
  Sender: FDA-Public Use
  Company Number: US-ELI_LILLY_AND_COMPANY-US201609005494

PATIENT
  Age: 86 Year
  Sex: Female

DRUGS (1)
  1. TRULICITY [Suspect]
     Active Substance: DULAGLUTIDE
     Indication: TYPE 2 DIABETES MELLITUS
     Dosage: 0.75 MG, WEEKLY (1/W)
     Route: 065
     Dates: start: 201601

REACTIONS (8)
  - Cough [Unknown]
  - Fall [Unknown]
  - Hernia [Unknown]
  - Productive cough [Unknown]
  - Pain [Unknown]
  - Muscle spasms [Unknown]
  - Confusional state [Unknown]
  - Hypoacusis [Unknown]

NARRATIVE: CASE EVENT DATE: 201601
